FAERS Safety Report 25035187 (Version 1)
Quarter: 2025Q1

REPORT INFORMATION
  Report Type: Spontaneous
  Country: FR (occurrence: FR)
  Receive Date: 20250304
  Receipt Date: 20250304
  Transmission Date: 20250408
  Serious: Yes (Other)
  Sender: RANBAXY
  Company Number: FR-AFSSAPS-PO2025000017

PATIENT
  Age: 75 Year
  Sex: Male

DRUGS (1)
  1. LANSOPRAZOLE [Suspect]
     Active Substance: LANSOPRAZOLE
     Indication: Peptic ulcer haemorrhage
     Dosage: 60 MILLIGRAM, DAILY, 30 MG IN MORNING AND EVENING
     Route: 048
     Dates: start: 20241218, end: 20241230

REACTIONS (1)
  - Agranulocytosis [Recovered/Resolved]

NARRATIVE: CASE EVENT DATE: 20241230
